FAERS Safety Report 13304645 (Version 5)
Quarter: 2017Q3

REPORT INFORMATION
  Report Type: Report from Study
  Country: US (occurrence: US)
  Receive Date: 20170308
  Receipt Date: 20170817
  Transmission Date: 20171127
  Serious: Yes (Other)
  Sender: FDA-Public Use
  Company Number: US-AMGEN-USASL2017033439

PATIENT
  Age: 53 Year
  Sex: Male

DRUGS (3)
  1. ENBREL [Suspect]
     Active Substance: ETANERCEPT
     Indication: PSORIATIC ARTHROPATHY
     Dosage: 50 MG, QWK
     Route: 065
  2. ENBREL [Suspect]
     Active Substance: ETANERCEPT
     Dosage: 50 MG, QWK
     Route: 065
  3. JARDIANCE [Suspect]
     Active Substance: EMPAGLIFLOZIN
     Indication: DIABETES MELLITUS
     Dosage: UNK
     Route: 065

REACTIONS (15)
  - Oropharyngeal pain [Recovered/Resolved]
  - Injection site swelling [Recovered/Resolved]
  - Injection site warmth [Unknown]
  - Dehydration [Not Recovered/Not Resolved]
  - Diabetes mellitus [Unknown]
  - Inflammation [Not Recovered/Not Resolved]
  - Pain in extremity [Unknown]
  - Injection site pruritus [Recovering/Resolving]
  - Erythema [Not Recovered/Not Resolved]
  - Injection site pain [Unknown]
  - Drug dose omission [Unknown]
  - Drug effect incomplete [Unknown]
  - Injection site erythema [Recovered/Resolved]
  - Underdose [Unknown]
  - Pruritus [Not Recovered/Not Resolved]

NARRATIVE: CASE EVENT DATE: 2017
